FAERS Safety Report 12293502 (Version 1)
Quarter: 2016Q2

REPORT INFORMATION
  Report Type: Spontaneous
  Country: US (occurrence: US)
  Receive Date: 20160421
  Receipt Date: 20160421
  Transmission Date: 20160815
  Serious: Yes (Other)
  Sender: FDA-Public Use
  Company Number: US-INCYTE CORPORATION-2016IN002250

PATIENT

DRUGS (1)
  1. JAKAFI [Suspect]
     Active Substance: RUXOLITINIB
     Indication: MYELOFIBROSIS
     Route: 048

REACTIONS (4)
  - Pyrexia [Unknown]
  - Epstein-Barr virus infection [Unknown]
  - Blood count abnormal [Unknown]
  - Acute myeloid leukaemia [Unknown]
